FAERS Safety Report 4918112-2 (Version None)
Quarter: 2006Q1

REPORT INFORMATION
  Report Type: 
  Country: None (occurrence: None)
  Receive Date: 20060221
  Receipt Date: 20051019
  Transmission Date: 20060701
  Serious: Yes (Hospitalization, Disabling)
  Sender: FDA-Public Use
  Company Number: US-MERCK-0510USA07903

PATIENT
  Age: 63 Year
  Sex: Female
  Weight: 109 kg

DRUGS (6)
  1. VIOXX [Suspect]
     Indication: CARPAL TUNNEL SYNDROME
     Route: 048
     Dates: start: 20030701, end: 20040101
  2. VIOXX [Suspect]
     Indication: PAIN
     Route: 048
     Dates: start: 20030701, end: 20040101
  3. GLUCOPHAGE [Concomitant]
     Indication: DIABETES MELLITUS
     Route: 065
  4. GLUCOTROL XL [Concomitant]
     Indication: DIABETES MELLITUS
     Route: 065
  5. AVAPRO [Concomitant]
     Route: 065
  6. ASPIRIN [Concomitant]
     Indication: ARTHRALGIA
     Route: 065
     Dates: start: 20020101, end: 20040501

REACTIONS (8)
  - AMNESIA [None]
  - ANGINA PECTORIS [None]
  - CARDIAC MURMUR [None]
  - CEREBROVASCULAR ACCIDENT [None]
  - DIABETES MELLITUS [None]
  - PRURITUS ALLERGIC [None]
  - SPEECH DISORDER [None]
  - SWELLING [None]
